FAERS Safety Report 11258398 (Version 1)
Quarter: 2015Q3

REPORT INFORMATION
  Report Type: Spontaneous
  Country: GB (occurrence: None)
  Receive Date: 20150708
  Receipt Date: 20150708
  Transmission Date: 20151125
  Serious: Yes (Other)
  Sender: FDA-Public Use
  Company Number: COR_00316_2015

PATIENT
  Age: 62 Year
  Sex: Male

DRUGS (2)
  1. UROMITEXAN [Suspect]
     Active Substance: MESNA
     Indication: LUNG NEOPLASM MALIGNANT
     Dosage: (DF)
  2. ETOPOSIDE (ETOPOSIDE) [Suspect]
     Active Substance: ETOPOSIDE
     Indication: LUNG NEOPLASM MALIGNANT
     Dosage: (DF)

REACTIONS (4)
  - Hypersensitivity [None]
  - Red blood cell count decreased [None]
  - Malaise [None]
  - Haemoglobin decreased [None]
